FAERS Safety Report 9895472 (Version 1)
Quarter: 2014Q1

REPORT INFORMATION
  Report Type: Spontaneous
  Country: US (occurrence: US)
  Receive Date: 20140213
  Receipt Date: 20140213
  Transmission Date: 20141002
  Serious: Yes (Other)
  Sender: FDA-Public Use
  Company Number: US-BRISTOL-MYERS SQUIBB COMPANY-18715854

PATIENT
  Age: 65 Year
  Sex: Female

DRUGS (2)
  1. ORENCIA [Suspect]
     Indication: RHEUMATOID ARTHRITIS
     Dosage: LAST DOSE: 6-7 WEEKS AGO
     Route: 042
  2. BYSTOLIC [Concomitant]
     Indication: BLOOD PRESSURE

REACTIONS (2)
  - Chronic myeloid leukaemia [Unknown]
  - Nasopharyngitis [Unknown]
